FAERS Safety Report 17043121 (Version 3)
Quarter: 2019Q4

REPORT INFORMATION
  Report Type: Spontaneous
  Country: US (occurrence: US)
  Receive Date: 20191118
  Receipt Date: 20191227
  Transmission Date: 20200122
  Serious: Yes (Other)
  Sender: FDA-Public Use
  Company Number: US-PFIZER INC-2019494619

PATIENT
  Age: 65 Year
  Sex: Female
  Weight: 28.57 kg

DRUGS (1)
  1. IBRANCE [Suspect]
     Active Substance: PALBOCICLIB
     Indication: BREAST CANCER METASTATIC
     Dosage: 125 MG, CYCLIC (D 1-21 Q28 DAYS)
     Route: 048
     Dates: start: 20191023, end: 201911

REACTIONS (4)
  - Dyspepsia [Unknown]
  - Asthenia [Unknown]
  - Weight increased [Unknown]
  - Blood count abnormal [Unknown]

NARRATIVE: CASE EVENT DATE: 2019
